FAERS Safety Report 23559303 (Version 2)
Quarter: 2024Q1

REPORT INFORMATION
  Report Type: Spontaneous
  Country: CH (occurrence: CH)
  Receive Date: 20240223
  Receipt Date: 20240227
  Transmission Date: 20240410
  Serious: Yes (Other)
  Sender: FDA-Public Use
  Company Number: None

PATIENT
  Age: 50 Year
  Sex: Female
  Weight: 72.7 kg

DRUGS (17)
  1. ELIQUIS [Suspect]
     Active Substance: APIXABAN
     Indication: Product used for unknown indication
     Route: 048
     Dates: start: 20240109, end: 20240129
  2. CEFEPIME HYDROCHLORIDE [Suspect]
     Active Substance: CEFEPIME HYDROCHLORIDE
     Indication: Staphylococcal bacteraemia
     Dates: start: 20240108, end: 20240109
  3. KEFZOL [Suspect]
     Active Substance: CEFAZOLIN SODIUM
     Indication: Staphylococcal bacteraemia
     Route: 042
     Dates: start: 20240109, end: 20240129
  4. ENHERTU [Suspect]
     Active Substance: FAM-TRASTUZUMAB DERUXTECAN-NXKI
     Indication: Breast cancer female
     Dates: start: 20230920
  5. BISOPROLOL FUMARATE [Suspect]
     Active Substance: BISOPROLOL FUMARATE
     Indication: Product used for unknown indication
     Route: 048
     Dates: start: 20240109
  6. PANTOPRAZOLE SODIUM [Suspect]
     Active Substance: PANTOPRAZOLE SODIUM
     Indication: Product used for unknown indication
     Route: 048
     Dates: start: 20240109
  7. NALOXONE HYDROCHLORIDE\OXYCODONE HYDROCHLORIDE [Suspect]
     Active Substance: NALOXONE HYDROCHLORIDE\OXYCODONE HYDROCHLORIDE
     Indication: Product used for unknown indication
     Dosage: EXTENDED RELEASE TABLETS 5/ 2.5 MG
     Route: 048
     Dates: start: 20240109, end: 20240130
  8. NALOXONE HYDROCHLORIDE\OXYCODONE HYDROCHLORIDE [Suspect]
     Active Substance: NALOXONE HYDROCHLORIDE\OXYCODONE HYDROCHLORIDE
     Dosage: EXTENDED RELEASE TABLETS
     Dates: start: 20240130
  9. DAFALGAN [Suspect]
     Active Substance: ACETAMINOPHEN
     Indication: Pain
     Dosage: 500 MG PO MAXIMUM 1 TABLET EVERY 6 HOURS
     Route: 048
     Dates: start: 20240109
  10. ZOLEDRONIC ACID [Concomitant]
     Active Substance: ZOLEDRONIC ACID
     Indication: Product used for unknown indication
     Dosage: INDICATION: OSTEOPROTECTION
     Route: 042
     Dates: start: 20220208
  11. MAGNESIUM ASPARTATE HYDROCHLORIDE [Concomitant]
     Active Substance: MAGNESIUM ASPARTATE HYDROCHLORIDE
     Indication: Product used for unknown indication
     Dosage: MAGNESIOCARD (MAGNESIUM) CITRON SACHET 5 MMOL (121.5 MG)
     Route: 048
     Dates: start: 20240109
  12. PHOSCAP [Concomitant]
     Indication: Product used for unknown indication
     Route: 048
     Dates: start: 20240109
  13. LAXIPEG [Concomitant]
     Indication: Product used for unknown indication
     Dosage: AROMA-FREE POWDER 10 G SACHETS
     Route: 048
     Dates: start: 20240109, end: 20240127
  14. LAXIPEG [Concomitant]
     Dosage: AS NECESSARY
     Route: 048
     Dates: start: 20240128
  15. PREGABALIN [Concomitant]
     Active Substance: PREGABALIN
     Indication: Product used for unknown indication
     Route: 048
     Dates: start: 20240109, end: 20240127
  16. PREGABALIN [Concomitant]
     Active Substance: PREGABALIN
     Dates: start: 20240130
  17. DENTOHEXIN [Concomitant]
     Indication: Product used for unknown indication
     Route: 002
     Dates: start: 20240109

REACTIONS (1)
  - Liver disorder [Not Recovered/Not Resolved]

NARRATIVE: CASE EVENT DATE: 20240110
